FAERS Safety Report 19256148 (Version 2)
Quarter: 2021Q4

REPORT INFORMATION
  Report Type: Report from Study
  Country: IT (occurrence: IT)
  Receive Date: 20210513
  Receipt Date: 20211008
  Transmission Date: 20220304
  Serious: Yes (Hospitalization)
  Sender: FDA-Public Use
  Company Number: IT-ALLERGAN-2117578US

PATIENT
  Sex: Male

DRUGS (2)
  1. ESCITALOPRAM OXALATE [Suspect]
     Active Substance: ESCITALOPRAM OXALATE
     Indication: Depression
     Dosage: FORM STRENGTH: 20MG/ML; OVERDOSE: 15ML OF 20MG/ML ESCITALOPRAM (300MG), ORAL DROPS, SOLUTION
     Route: 065
  2. ALPRAZOLAM [Suspect]
     Active Substance: ALPRAZOLAM
     Indication: Depression
     Dosage: 20 ML, 0.75 MG/ML
     Route: 065

REACTIONS (4)
  - Sopor [Unknown]
  - Nystagmus [Unknown]
  - Suicidal ideation [Unknown]
  - Overdose [Unknown]

NARRATIVE: CASE EVENT DATE: 20210422
